FAERS Safety Report 16914256 (Version 2)
Quarter: 2019Q4

REPORT INFORMATION
  Report Type: Spontaneous
  Country: US (occurrence: US)
  Receive Date: 20191014
  Receipt Date: 20191023
  Transmission Date: 20200122
  Serious: No
  Sender: FDA-Public Use
  Company Number: US-AMNEAL PHARMACEUTICALS-2019-AMRX-02134

PATIENT
  Sex: Female

DRUGS (1)
  1. BOSENTAN. [Suspect]
     Active Substance: BOSENTAN
     Indication: LUNG DISORDER
     Dosage: 62.5 MILLIGRAM, 2 /DAY
     Route: 065
     Dates: start: 201312

REACTIONS (1)
  - No adverse event [Unknown]
